FAERS Safety Report 7794093-1 (Version None)
Quarter: 2011Q4

REPORT INFORMATION
  Report Type: 
  Country: None (occurrence: None)
  Receive Date: 20111004
  Receipt Date: 20110920
  Transmission Date: 20120403
  Serious: Yes (Other)
  Sender: FDA-Public Use
  Company Number: US-JNJFOC-20110909806

PATIENT
  Sex: Male
  Weight: 2.43 kg

DRUGS (11)
  1. CLOBAZAM [Suspect]
     Indication: CONVULSION
     Route: 065
  2. FELBAMATE [Suspect]
     Indication: CONVULSION
     Route: 065
  3. CLONAZEPAM [Suspect]
     Indication: CONVULSION
     Route: 065
  4. TOPIRAMATE [Suspect]
     Indication: CONVULSION
     Route: 048
  5. RUFINAMIDE [Suspect]
     Indication: CONVULSION
     Route: 065
  6. PYRIDOXINE HCL [Suspect]
     Indication: CONVULSION
     Route: 065
  7. LORAZEPAM [Suspect]
     Indication: CONVULSION
     Route: 065
  8. FOSPHENYTOIN [Suspect]
     Indication: CONVULSION
     Route: 065
  9. VIGABATRIN [Suspect]
     Indication: CONVULSION
     Route: 065
  10. LEVETIRACETAM [Suspect]
     Indication: CONVULSION
     Route: 065
  11. PHENOBARBITAL TAB [Suspect]
     Indication: CONVULSION
     Route: 065

REACTIONS (3)
  - EPILEPSY [None]
  - DRUG ADMINISTERED TO PATIENT OF INAPPROPRIATE AGE [None]
  - MYOCLONUS [None]
